FAERS Safety Report 18414012 (Version 2)
Quarter: 2020Q4

REPORT INFORMATION
  Report Type: Spontaneous
  Country: PL (occurrence: PL)
  Receive Date: 20201022
  Receipt Date: 20201027
  Transmission Date: 20210114
  Serious: Yes (Hospitalization)
  Sender: FDA-Public Use
  Company Number: PL-PFIZER INC-2020404585

PATIENT
  Age: 32 Year
  Sex: Female

DRUGS (6)
  1. SERTRALINE HCL [Suspect]
     Active Substance: SERTRALINE HYDROCHLORIDE
     Dosage: 50 MG, DAILY (50 MG IN THE MORNING)
  2. ITOPRIDE [Interacting]
     Active Substance: ITOPRIDE
     Dosage: 50 MG, 3X/DAY
     Route: 048
  3. HYDROXYZINE [Concomitant]
     Active Substance: HYDROXYZINE HYDROCHLORIDE
     Dosage: 25 MG, 3X/DAY
  4. SERTRALINE HCL [Interacting]
     Active Substance: SERTRALINE HYDROCHLORIDE
     Dosage: 100 MG, DAILY
  5. ITOPRIDE [Interacting]
     Active Substance: ITOPRIDE
     Dosage: 50 MG, 2X/DAY
     Route: 048
  6. OMEPRAZOLE. [Interacting]
     Active Substance: OMEPRAZOLE
     Indication: DYSPEPSIA
     Dosage: UNK

REACTIONS (3)
  - Drug interaction [Recovering/Resolving]
  - Headache [Recovering/Resolving]
  - Paraesthesia [Recovered/Resolved]
